FAERS Safety Report 12423663 (Version 1)
Quarter: 2016Q2

REPORT INFORMATION
  Report Type: Spontaneous
  Country: US (occurrence: US)
  Receive Date: 20160601
  Receipt Date: 20160601
  Transmission Date: 20160815
  Serious: No
  Sender: FDA-Public Use
  Company Number: US-NOVEN PHARMACEUTICALS, INC.-US2015000681

PATIENT
  Age: 16 Year
  Sex: Female

DRUGS (2)
  1. DAYTRANA [Suspect]
     Active Substance: METHYLPHENIDATE
     Indication: FATIGUE
     Dosage: 30 MG, UNK
     Route: 062
     Dates: start: 201508
  2. DAYTRANA [Suspect]
     Active Substance: METHYLPHENIDATE
     Indication: SLEEP DISORDER
     Dosage: 20 MG, UNKNOWN
     Route: 062
     Dates: start: 2014

REACTIONS (5)
  - Product quality issue [Unknown]
  - Incorrect drug administration duration [Unknown]
  - Drug effect decreased [Unknown]
  - Off label use [Unknown]
  - Product adhesion issue [Unknown]

NARRATIVE: CASE EVENT DATE: 2015
